FAERS Safety Report 10372034 (Version 2)
Quarter: 2014Q3

REPORT INFORMATION
  Report Type: Spontaneous
  Country: US (occurrence: US)
  Receive Date: 20140808
  Receipt Date: 20140922
  Transmission Date: 20150326
  Serious: Yes (Other)
  Sender: FDA-Public Use
  Company Number: US-TEVA-499499USA

PATIENT
  Sex: Female

DRUGS (1)
  1. COPAXONE [Suspect]
     Active Substance: GLATIRAMER ACETATE
     Indication: MULTIPLE SCLEROSIS
     Dosage: DOSAGE NOT PROVIDED

REACTIONS (5)
  - Influenza like illness [Unknown]
  - Dyspnoea [Unknown]
  - Tracheostomy [Not Recovered/Not Resolved]
  - Mechanical ventilation [Not Recovered/Not Resolved]
  - Injection site reaction [Unknown]
